FAERS Safety Report 6161708-3 (Version None)
Quarter: 2009Q2

REPORT INFORMATION
  Report Type: 
  Country: None (occurrence: None)
  Receive Date: 20090421
  Receipt Date: 20090415
  Transmission Date: 20091009
  Serious: Yes (Other)
  Sender: FDA-Public Use
  Company Number: CH-BAYER-200918114GPV

PATIENT
  Age: 36 Year
  Sex: Male

DRUGS (1)
  1. INTERFERON BETA-1B [Suspect]
     Indication: MULTIPLE SCLEROSIS
     Route: 058
     Dates: start: 20010101

REACTIONS (5)
  - APPLICATION SITE ERYTHEMA [None]
  - CUTANEOUS VASCULITIS [None]
  - PAIN [None]
  - SKIN LESION [None]
  - SKIN PLAQUE [None]
